FAERS Safety Report 10741779 (Version 1)
Quarter: 2015Q1

REPORT INFORMATION
  Report Type: Spontaneous
  Country: US (occurrence: None)
  Receive Date: 20150123
  Receipt Date: 20150123
  Transmission Date: 20150721
  Serious: Yes (Life-Threatening, Hospitalization)
  Sender: FDA-Public Use
  Company Number: None

PATIENT
  Age: 76 Year
  Sex: Female
  Weight: 86.5 kg

DRUGS (1)
  1. EVEROLIMUS [Suspect]
     Active Substance: EVEROLIMUS
     Indication: BREAST CANCER METASTATIC
     Dosage: 1 PILL
     Route: 048
     Dates: start: 20140311, end: 20141214

REACTIONS (3)
  - Atrial fibrillation [None]
  - Cardiac failure [None]
  - Oedema peripheral [None]

NARRATIVE: CASE EVENT DATE: 20141224
